FAERS Safety Report 19515381 (Version 1)
Quarter: 2021Q3

REPORT INFORMATION
  Report Type: Report from Study
  Country: CR (occurrence: CR)
  Receive Date: 20210710
  Receipt Date: 20210710
  Transmission Date: 20211014
  Serious: Yes (Hospitalization)
  Sender: FDA-Public Use
  Company Number: NVSC2021CR129675

PATIENT
  Age: 79 Year
  Sex: Male

DRUGS (4)
  1. DIOVAN [Suspect]
     Active Substance: VALSARTAN
     Indication: HYPERTENSION
     Dosage: 80 MG
     Route: 065
  2. VYMADA [Suspect]
     Active Substance: SACUBITRIL\VALSARTAN
     Indication: PRODUCT USED FOR UNKNOWN INDICATION
     Dosage: 200 MG (STARED ONE YEAR AGO APPROXIMATELY)
     Route: 065
     Dates: end: 202101
  3. DIOVAN [Suspect]
     Active Substance: VALSARTAN
     Dosage: 320 MG
     Route: 048
     Dates: start: 202101
  4. COREG [Concomitant]
     Active Substance: CARVEDILOL
     Indication: DIABETES MELLITUS
     Dosage: 1 DF, QD (APPROXIMATELY 6 YEARS AGO)
     Route: 048

REACTIONS (2)
  - Gastric haemorrhage [Unknown]
  - Overdose [Unknown]

NARRATIVE: CASE EVENT DATE: 20210103
